FAERS Safety Report 17842421 (Version 1)
Quarter: 2020Q2

REPORT INFORMATION
  Report Type: Spontaneous
  Country: US (occurrence: US)
  Receive Date: 20200529
  Receipt Date: 20200529
  Transmission Date: 20200714
  Serious: No
  Sender: FDA-Public Use
  Company Number: US-LNK INTERNATIONAL, INC.-2084327

PATIENT
  Sex: Female

DRUGS (1)
  1. BISACODYL 5MG ENTERIC COATED PINK TABLET [Suspect]
     Active Substance: BISACODYL
     Indication: CONSTIPATION

REACTIONS (3)
  - Diarrhoea [None]
  - Abdominal pain upper [None]
  - Haemorrhage [None]
